FAERS Safety Report 15579056 (Version 1)
Quarter: 2018Q4

REPORT INFORMATION
  Report Type: Spontaneous
  Country: JP (occurrence: JP)
  Receive Date: 20181102
  Receipt Date: 20181102
  Transmission Date: 20190205
  Serious: Yes (Other)
  Sender: FDA-Public Use
  Company Number: JP-PFIZER INC-2018447334

PATIENT
  Age: 9 Decade
  Sex: Female

DRUGS (2)
  1. LIPITOR [Suspect]
     Active Substance: ATORVASTATIN CALCIUM
     Dosage: 5 MG, 1X/DAY
     Route: 048
  2. EXELON [RIVASTIGMINE] [Concomitant]
     Indication: VASCULAR DEMENTIA
     Dosage: UNK
     Route: 065

REACTIONS (3)
  - Condition aggravated [Unknown]
  - Memory impairment [Unknown]
  - Dementia [Unknown]
